FAERS Safety Report 24784846 (Version 1)
Quarter: 2024Q4

REPORT INFORMATION
  Report Type: Spontaneous
  Country: US (occurrence: US)
  Receive Date: 20241228
  Receipt Date: 20241228
  Transmission Date: 20250114
  Serious: No
  Sender: QUAGEN PHARMACEUTICALS
  Company Number: US-QUAGEN-2024QUASPO00589

PATIENT

DRUGS (2)
  1. CLOBETASOL PROPIONATE [Suspect]
     Active Substance: CLOBETASOL PROPIONATE
     Indication: Eczema
     Route: 065
  2. ZORYVE [Suspect]
     Active Substance: ROFLUMILAST
     Indication: Eczema
     Route: 065

REACTIONS (1)
  - Drug ineffective for unapproved indication [Unknown]
